FAERS Safety Report 4851335-X (Version None)
Quarter: 2005Q4

REPORT INFORMATION
  Report Type: 
  Country: None (occurrence: None)
  Receive Date: 20051209
  Receipt Date: 20051128
  Transmission Date: 20060501
  Serious: Yes (Death)
  Sender: FDA-Public Use
  Company Number: PHEH2005US12587

PATIENT
  Age: 79 Year
  Sex: Female
  Weight: 47.6277 kg

DRUGS (9)
  1. VISUDYNE [Suspect]
     Indication: MACULAR DEGENERATION
     Dosage: 8.8 MG DAILY IV
     Route: 042
     Dates: start: 20050217, end: 20050217
  2. FLUOROSCEIN [Concomitant]
  3. LOTREL [Concomitant]
  4. HYDROCHLOROTHIAZIDE [Concomitant]
  5. COMBIVENT [Concomitant]
  6. FOSAMAX [Concomitant]
  7. ZOCOR [Concomitant]
  8. ATENOLOL [Concomitant]
  9. ATACAND [Concomitant]

REACTIONS (2)
  - CARDIAC DISORDER [None]
  - VISUAL ACUITY REDUCED [None]
